FAERS Safety Report 4582719-5 (Version None)
Quarter: 2005Q1

REPORT INFORMATION
  Report Type: 
  Country: None (occurrence: None)
  Receive Date: 20050215
  Receipt Date: 20050208
  Transmission Date: 20050727
  Serious: Yes (Hospitalization, Other)
  Sender: FDA-Public Use
  Company Number: US-BRISTOL-MYERS SQUIBB COMPANY-12855169

PATIENT
  Age: 58 Year
  Sex: Male
  Weight: 71 kg

DRUGS (4)
  1. CETUXIMAB [Suspect]
     Indication: NON-SMALL CELL LUNG CANCER
     Dosage: INITIAL TX DATE:12-OCT-04/6488MG WAS TOTAL DOSE ADM THIS COURSE/LAST CYCLE HELD/NOT TO BE MADE UP
     Route: 042
     Dates: start: 20050127
  2. CARBOPLATIN [Suspect]
     Indication: NON-SMALL CELL LUNG CANCER
     Dosage: INITIAL TX DATE:12-OCT-04/2710MG WAS TOTAL DOSE GIVEN FOR BOTH CONCURRENT + CONSOLIDATION COURSES
     Route: 042
     Dates: start: 20050120
  3. PACLITAXEL [Suspect]
     Indication: NON-SMALL CELL LUNG CANCER
     Dosage: INITIAL TX DATE:12-OCT-04/1300MG TOTAL DOSE GIVEN FOR BOTH CONCURRENT + CONSOLIDATION COURSES
     Route: 042
     Dates: start: 20050120
  4. RADIATION THERAPY [Suspect]
     Indication: NON-SMALL CELL LUNG CANCER
     Dosage: TOTAL DOSE TO DATE: 63 GY. NO. OF FRACTIONS: 35  NO. OF ELAPSED DAYS: 51
     Dates: start: 20041208

REACTIONS (8)
  - DEHYDRATION [None]
  - FATIGUE [None]
  - HAEMOGLOBIN DECREASED [None]
  - HYPOMAGNESAEMIA [None]
  - ORTHOSTATIC HYPOTENSION [None]
  - PLATELET COUNT DECREASED [None]
  - SYNCOPE [None]
  - VERTIGO [None]
